FAERS Safety Report 18067463 (Version 2)
Quarter: 2020Q3

REPORT INFORMATION
  Report Type: Spontaneous
  Country: US (occurrence: US)
  Receive Date: 20200724
  Receipt Date: 20200910
  Transmission Date: 20201103
  Serious: Yes (Other)
  Sender: FDA-Public Use
  Company Number: NVSC2020US207334

PATIENT
  Age: 71 Year
  Sex: Male

DRUGS (3)
  1. BEOVU [Suspect]
     Active Substance: BROLUCIZUMAB-DBLL
     Indication: NEOVASCULAR AGE-RELATED MACULAR DEGENERATION
     Dosage: 6 MG, QMO
     Route: 047
     Dates: start: 20200109
  2. BEOVU [Suspect]
     Active Substance: BROLUCIZUMAB-DBLL
     Dosage: 6 MG, QMO
     Route: 047
     Dates: start: 20200505
  3. BEOVU [Suspect]
     Active Substance: BROLUCIZUMAB-DBLL
     Dosage: 6 MG, QMO
     Route: 047
     Dates: start: 20200227

REACTIONS (3)
  - Anterior chamber flare [Unknown]
  - Uveitis [Unknown]
  - Anterior chamber cell [Unknown]

NARRATIVE: CASE EVENT DATE: 20200721
